FAERS Safety Report 7484721-2 (Version None)
Quarter: 2011Q2

REPORT INFORMATION
  Report Type: 
  Country: None (occurrence: None)
  Receive Date: 20110503
  Receipt Date: 20110329
  Transmission Date: 20111010
  Serious: Yes (Life-Threatening, Hospitalization, Other)
  Sender: FDA-Public Use
  Company Number: 2011028067

PATIENT
  Age: 64 Year
  Sex: Male
  Weight: 99.7913 kg

DRUGS (25)
  1. DILTIAZEM [Concomitant]
  2. PREVACID [Concomitant]
  3. CORTEF (HYDROCORITOSONE) [Concomitant]
  4. LANTUS [Concomitant]
  5. ADVAIR HFA [Concomitant]
  6. COZAAR [Concomitant]
  7. GLIMEPIRIDE [Concomitant]
  8. HYDROCORTONE [Concomitant]
  9. VESICARE [Concomitant]
  10. CRESTOR [Concomitant]
  11. ANDROGEL [Concomitant]
  12. HIZENTRA [Suspect]
     Indication: IMMUNODEFICIENCY
     Dosage: 9 G 1X/WEEK, OVER 1.5 HOURS, SUBCUTANEOUS
     Route: 058
     Dates: start: 20110205
  13. FLECTOR (DICLOFENAC SODIUIM) [Concomitant]
  14. CELEBREX [Concomitant]
  15. NOVOLOG [Concomitant]
  16. SPIRIVA [Concomitant]
  17. OXYCONTIN [Concomitant]
  18. TIZANIDINE (TIZANIDINE) [Concomitant]
  19. HIZENTRA [Suspect]
  20. UROXATRAL [Concomitant]
  21. FUROSEMIDE [Concomitant]
  22. LORAZEPAM [Concomitant]
  23. GABAPENTIN [Concomitant]
  24. CYMBALTA [Concomitant]
  25. OXYCODONE HCL [Concomitant]

REACTIONS (2)
  - PNEUMONIA [None]
  - SEPSIS [None]
